FAERS Safety Report 14883839 (Version 1)
Quarter: 2018Q2

REPORT INFORMATION
  Report Type: Spontaneous
  Country: US (occurrence: US)
  Receive Date: 20180511
  Receipt Date: 20180511
  Transmission Date: 20180711
  Serious: Yes (Other)
  Sender: FDA-Public Use
  Company Number: US-PFIZER INC-2018191497

PATIENT
  Age: 75 Year

DRUGS (1)
  1. EUCRISA [Suspect]
     Active Substance: CRISABOROLE
     Indication: DERMATITIS ATOPIC
     Dosage: 2X/DAY

REACTIONS (4)
  - Pharyngeal oedema [Unknown]
  - Heart rate increased [Unknown]
  - Urticaria [Unknown]
  - Swollen tongue [Unknown]
